FAERS Safety Report 8928673 (Version 1)
Quarter: 2012Q4

REPORT INFORMATION
  Report Type: 
  Country: JP (occurrence: JP)
  Receive Date: 20121127
  Receipt Date: 20121127
  Transmission Date: 20130627
  Serious: Yes (Hospitalization)
  Sender: FDA-Public Use
  Company Number: JP-BAXTER-2012BAX024685

PATIENT
  Age: 87 Year
  Sex: Male

DRUGS (3)
  1. DIANEAL-N PD-4 1.5 PD SOLUTION [Suspect]
     Indication: GLOMERULONEPHRITIS
     Route: 033
  2. DIANEAL-N PD-4 2.5 PD SOLUTION [Suspect]
     Indication: GLOMERULONEPHRITIS
     Route: 033
  3. EXTRANEAL [Suspect]
     Indication: GLOMERULONEPHRITIS
     Route: 033

REACTIONS (2)
  - Cerebral haemorrhage [Recovering/Resolving]
  - Hypertension [Unknown]
